FAERS Safety Report 24458361 (Version 1)
Quarter: 2024Q4

REPORT INFORMATION
  Report Type: Report from Study
  Country: BR (occurrence: BR)
  Receive Date: 20241018
  Receipt Date: 20241018
  Transmission Date: 20250114
  Serious: Yes (Other)
  Sender: UCB
  Company Number: BR-UCBSA-2024053215

PATIENT
  Sex: Female

DRUGS (8)
  1. ROTIGOTINE [Suspect]
     Active Substance: ROTIGOTINE
     Indication: Product used for unknown indication
     Dosage: 2 MG OR 4 MG PER DAY
     Dates: start: 2016
  2. ROTIGOTINE [Suspect]
     Active Substance: ROTIGOTINE
     Dosage: 8 MILLIGRAM, ONCE DAILY (QD)
     Dates: end: 20241001
  3. BENSERAZIDE\LEVODOPA [Concomitant]
     Active Substance: BENSERAZIDE\LEVODOPA
     Indication: Parkinson^s disease
     Dosage: TAKES 2 TABLETS EVERY 6 HOURS
     Dates: start: 2015
  4. AMANTADINE HYDROCHLORIDE [Concomitant]
     Active Substance: AMANTADINE HYDROCHLORIDE
     Indication: Parkinson^s disease
     Dosage: 100 MILLIGRAM, 2X/DAY (BID)
     Dates: start: 2015
  5. METHOTREXATE [Concomitant]
     Active Substance: METHOTREXATE
     Indication: Rheumatoid arthritis
     Dosage: 0.7 MILLILITER, WEEKLY (QW)
     Dates: start: 2017, end: 2017
  6. METHOTREXATE [Concomitant]
     Active Substance: METHOTREXATE
     Dosage: 0.7 MILLILITER, WEEKLY (QW)
     Dates: start: 2018
  7. INFLIXIMAB [Concomitant]
     Active Substance: INFLIXIMAB
     Indication: Rheumatoid arthritis
     Dosage: UNK, EV 2 MONTHS
     Dates: start: 2017, end: 2017
  8. INFLIXIMAB [Concomitant]
     Active Substance: INFLIXIMAB
     Dosage: UNK, EV 2 MONTHS
     Dates: start: 2018

REACTIONS (4)
  - Breast cancer [Unknown]
  - Breast tumour excision [Unknown]
  - Product dose omission issue [Unknown]
  - Product availability issue [Unknown]

NARRATIVE: CASE EVENT DATE: 20220101
